FAERS Safety Report 5925180-8 (Version None)
Quarter: 2008Q4

REPORT INFORMATION
  Report Type: 
  Country: None (occurrence: None)
  Receive Date: 20081020
  Receipt Date: 20081020
  Transmission Date: 20090506
  Serious: Yes (Other)
  Sender: FDA-Public Use
  Company Number: None

PATIENT
  Age: 55 Year
  Sex: Female
  Weight: 59.8748 kg

DRUGS (2)
  1. LEVAQUIN [Suspect]
     Indication: INFECTION
     Dosage: 1 TAB 5OOMG ONCE PER DAY PO
     Route: 048
     Dates: start: 20081014, end: 20081017
  2. LEVAQUIN [Suspect]
     Indication: PYREXIA
     Dosage: 1 TAB 5OOMG ONCE PER DAY PO
     Route: 048
     Dates: start: 20081014, end: 20081017

REACTIONS (8)
  - ABDOMINAL DISCOMFORT [None]
  - INFECTION [None]
  - INSOMNIA [None]
  - PARAESTHESIA [None]
  - RASH GENERALISED [None]
  - RASH MACULAR [None]
  - SUNBURN [None]
  - TINNITUS [None]
